FAERS Safety Report 4587156-5 (Version None)
Quarter: 2005Q1

REPORT INFORMATION
  Report Type: 
  Country: None (occurrence: None)
  Receive Date: 20050218
  Receipt Date: 20041018
  Transmission Date: 20050727
  Serious: Yes (Other)
  Sender: FDA-Public Use
  Company Number: JP-JNJFOC-20040905490

PATIENT
  Sex: Male

DRUGS (1)
  1. ITRIZOLE [Suspect]
     Indication: ONYCHOMYCOSIS
     Route: 049

REACTIONS (5)
  - ERYTHEMA [None]
  - HEPATIC FUNCTION ABNORMAL [None]
  - OEDEMA [None]
  - PETECHIAE [None]
  - PURPURA [None]
